FAERS Safety Report 15250345 (Version 2)
Quarter: 2020Q2

REPORT INFORMATION
  Report Type: Spontaneous
  Country: FR (occurrence: FR)
  Receive Date: 20180807
  Receipt Date: 20200415
  Transmission Date: 20200713
  Serious: Yes (Hospitalization, Other)
  Sender: FDA-Public Use
  Company Number: FR-PFIZER INC-2018310740

PATIENT
  Age: 63 Year
  Sex: Female

DRUGS (4)
  1. PREDNISONE. [Suspect]
     Active Substance: PREDNISONE
     Indication: LYMPHOMA
     Dosage: UNK (1ST CURE)
     Route: 042
     Dates: start: 20180601, end: 20180601
  2. CYCLOPHOSPHAMIDE. [Suspect]
     Active Substance: CYCLOPHOSPHAMIDE
     Indication: LYMPHOMA
     Dosage: UNK (1ST CURE)
     Route: 042
     Dates: start: 20180601, end: 20180601
  3. VINCRISTINE SULFATE. [Suspect]
     Active Substance: VINCRISTINE SULFATE
     Indication: LYMPHOMA
     Dosage: UNK (1ST CURE)
     Route: 042
     Dates: start: 20180601, end: 20180601
  4. DOXORUBICIN HCL [Suspect]
     Active Substance: DOXORUBICIN HYDROCHLORIDE
     Indication: LYMPHOMA
     Dosage: UNK (1ST CURE)
     Route: 042
     Dates: start: 20180601, end: 20180601

REACTIONS (4)
  - Cardiac failure [Not Recovered/Not Resolved]
  - Myocardial oedema [Recovering/Resolving]
  - Acute pulmonary oedema [Recovering/Resolving]
  - Ejection fraction decreased [Recovered/Resolved]

NARRATIVE: CASE EVENT DATE: 201806
